FAERS Safety Report 5430614-1 (Version None)
Quarter: 2007Q3

REPORT INFORMATION
  Report Type: 
  Country: None (occurrence: None)
  Receive Date: 20070830
  Receipt Date: 20070821
  Transmission Date: 20080115
  Serious: Yes (Other)
  Sender: FDA-Public Use
  Company Number: HQWYE759622AUG07

PATIENT
  Sex: Male
  Weight: 59.02 kg

DRUGS (5)
  1. PHOSPHOLINE IODIDE [Suspect]
     Indication: GLAUCOMA
     Dosage: LOWER DOSE
     Route: 065
  2. PHOSPHOLINE IODIDE [Suspect]
     Dosage: 0.125 TWICE A DAY
     Route: 065
     Dates: start: 20070301
  3. ALPHAGAN [Concomitant]
  4. LUMIGAN [Concomitant]
  5. COSOPT [Concomitant]

REACTIONS (1)
  - CATARACT [None]
